FAERS Safety Report 8274084-7 (Version None)
Quarter: 2012Q2

REPORT INFORMATION
  Report Type: 
  Country: None (occurrence: None)
  Receive Date: 20120411
  Receipt Date: 20120403
  Transmission Date: 20120825
  Serious: Yes (Hospitalization, Other)
  Sender: FDA-Public Use
  Company Number: US-ASTRAZENECA-2011SE40833

PATIENT
  Age: 56 Year
  Sex: Female
  Weight: 60.8 kg

DRUGS (21)
  1. SEROQUEL [Suspect]
     Indication: SLEEP DISORDER
     Route: 048
  2. LAMISIL [Concomitant]
  3. SEROQUEL [Suspect]
     Indication: SCHIZOPHRENIA
     Route: 048
  4. SEROQUEL [Suspect]
     Route: 048
  5. BYSTOLIC [Concomitant]
  6. SEROQUEL [Suspect]
     Indication: BIPOLAR DISORDER
     Route: 048
  7. SEROQUEL [Suspect]
     Route: 048
  8. SEROQUEL [Suspect]
     Route: 048
  9. LASIX [Concomitant]
     Dosage: PRN
  10. TOPAMAX [Concomitant]
  11. LIPITOR [Concomitant]
  12. SEROQUEL [Suspect]
     Indication: NIGHTMARE
     Route: 048
  13. SEROQUEL [Suspect]
     Indication: DEPRESSION
     Route: 048
  14. RITALIN [Concomitant]
  15. SEROQUEL [Suspect]
     Route: 048
  16. VALIUM [Concomitant]
  17. CYMBALTA [Concomitant]
  18. RESTASIS [Concomitant]
  19. SEROQUEL [Suspect]
     Route: 048
  20. BACLOFEN [Concomitant]
  21. TRICOR [Concomitant]

REACTIONS (6)
  - AMNESIA [None]
  - WEIGHT INCREASED [None]
  - HALLUCINATION [None]
  - SUICIDAL IDEATION [None]
  - FALL [None]
  - NIGHTMARE [None]
